FAERS Safety Report 18305000 (Version 2)
Quarter: 2020Q4

REPORT INFORMATION
  Report Type: Spontaneous
  Country: US (occurrence: US)
  Receive Date: 20200923
  Receipt Date: 20201217
  Transmission Date: 20210113
  Serious: Yes (Hospitalization, Disabling, Other)
  Sender: FDA-Public Use
  Company Number: US-PURDUE-USA-2020-0167489

PATIENT
  Sex: Male

DRUGS (1)
  1. OXYCONTIN [Suspect]
     Active Substance: OXYCODONE HYDROCHLORIDE
     Indication: PAIN
     Dosage: UNK
     Route: 048
     Dates: start: 20190513

REACTIONS (9)
  - Multiple injuries [Unknown]
  - Loss of consciousness [Recovered/Resolved with Sequelae]
  - Fracture [Unknown]
  - Road traffic accident [Recovered/Resolved with Sequelae]
  - Accident [Unknown]
  - Skin abrasion [Unknown]
  - Disability [Not Recovered/Not Resolved]
  - Surgery [Unknown]
  - Contusion [Unknown]

NARRATIVE: CASE EVENT DATE: 20190514
